FAERS Safety Report 21228339 (Version 1)
Quarter: 2022Q3

REPORT INFORMATION
  Report Type: Spontaneous
  Country: US (occurrence: US)
  Receive Date: 20220818
  Receipt Date: 20220818
  Transmission Date: 20221027
  Serious: Yes (Hospitalization, Other)
  Sender: FDA-Public Use
  Company Number: US-TEVA-2022-US-2063890

PATIENT
  Age: 54 Year
  Sex: Female

DRUGS (2)
  1. COPAXONE [Suspect]
     Active Substance: GLATIRAMER ACETATE
     Indication: Multiple sclerosis
     Dosage: FORM STRENGTH : 40 MILLIGRAM; UNIT DOSE : 40 MILLIGRAM
     Route: 065
     Dates: start: 2019
  2. COPAXONE [Suspect]
     Active Substance: GLATIRAMER ACETATE
     Dosage: FORM STRENGTH AND ROUTE UNKNOWN
     Route: 065

REACTIONS (8)
  - Multiple sclerosis relapse [Unknown]
  - Gallbladder disorder [Unknown]
  - Near death experience [Unknown]
  - Pain in extremity [Unknown]
  - Vision blurred [Unknown]
  - Balance disorder [Unknown]
  - Hypoaesthesia [Unknown]
  - Dysphonia [Unknown]

NARRATIVE: CASE EVENT DATE: 20220712
